FAERS Safety Report 22297490 (Version 2)
Quarter: 2023Q2

REPORT INFORMATION
  Report Type: Other
  Country: IN (occurrence: None)
  Receive Date: 20230509
  Receipt Date: 20230511
  Transmission Date: 20230721
  Serious: Yes (Hospitalization)
  Sender: FDA-Public Use
  Company Number: IN-ROCHE-3344766

PATIENT
  Age: 66 Year
  Sex: Female

DRUGS (1)
  1. TECENTRIQ [Suspect]
     Active Substance: ATEZOLIZUMAB
     Indication: Hepatocellular carcinoma
     Route: 041
     Dates: start: 20230315

REACTIONS (4)
  - Blood creatinine decreased [Unknown]
  - Blood creatinine increased [Unknown]
  - Loss of consciousness [Unknown]
  - Renal impairment [Unknown]
